FAERS Safety Report 4660911-9 (Version None)
Quarter: 2005Q2

REPORT INFORMATION
  Report Type: 
  Country: None (occurrence: None)
  Receive Date: 20050427
  Receipt Date: 20040609
  Transmission Date: 20051028
  Serious: Yes (Other)
  Sender: FDA-Public Use
  Company Number: US-JNJFOC-20040602844

PATIENT
  Age: 41 Year
  Sex: Female

DRUGS (3)
  1. ULTRAM [Suspect]
     Indication: DRUG USE FOR UNKNOWN INDICATION
     Dosage: ORAL
     Route: 048
  2. NEURONTIN (CITICOLINE SODIUM) [Concomitant]
  3. VICODAN (VICODIN) [Concomitant]

REACTIONS (1)
  - DRUG DEPENDENCE [None]
